FAERS Safety Report 9886966 (Version 2)
Quarter: 2015Q4

REPORT INFORMATION
  Report Type: Report from Study
  Country: US (occurrence: US)
  Receive Date: 20140211
  Receipt Date: 20151016
  Transmission Date: 20160305
  Serious: Yes (Hospitalization, Other)
  Sender: FDA-Public Use
  Company Number: US-ROCHE-1344618

PATIENT
  Sex: Male

DRUGS (1)
  1. XELODA [Suspect]
     Active Substance: CAPECITABINE
     Indication: GASTRIC CANCER
     Dosage: 4 TABS TWICE DAILY FOR 14 DAYS THEN OFF FOR 7 DAYS
     Route: 048
     Dates: start: 20140103, end: 201401

REACTIONS (7)
  - Recurrent cancer [Not Recovered/Not Resolved]
  - Abdominal pain [Unknown]
  - Drug ineffective [Unknown]
  - Off label use [Unknown]
  - Cardiomegaly [Not Recovered/Not Resolved]
  - Renal failure [Recovering/Resolving]
  - Hepatic failure [Recovering/Resolving]
